FAERS Safety Report 7089862-X (Version None)
Quarter: 2010Q4

REPORT INFORMATION
  Report Type: 
  Country: None (occurrence: None)
  Receive Date: 20101108
  Receipt Date: 20101027
  Transmission Date: 20110411
  Serious: Yes (Hospitalization)
  Sender: FDA-Public Use
  Company Number: JP-AMGEN-QUU414925

PATIENT

DRUGS (15)
  1. ENBREL [Suspect]
     Indication: RHEUMATOID ARTHRITIS
     Dosage: 25
     Route: 058
     Dates: start: 20080525, end: 20100512
  2. TACROLIMUS [Suspect]
     Dosage: 1 MG, QD
     Route: 048
     Dates: start: 20081008, end: 20100512
  3. DEPAS [Concomitant]
     Dosage: .5 MG, QD
     Route: 048
     Dates: end: 20100512
  4. PREDNISOLONE [Concomitant]
     Dosage: 1 MG, QD
     Route: 048
  5. PREDNISOLONE [Concomitant]
     Route: 048
     Dates: start: 20080325, end: 20080804
  6. PREDNISOLONE [Concomitant]
     Route: 048
     Dates: start: 20080805, end: 20081201
  7. PREDNISOLONE [Concomitant]
     Route: 048
     Dates: start: 20081202, end: 20090112
  8. PREDNISOLONE [Concomitant]
     Route: 048
     Dates: start: 20090113, end: 20090310
  9. PREDNISOLONE [Concomitant]
     Route: 048
     Dates: start: 20090324, end: 20100111
  10. PREDNISOLONE [Concomitant]
     Route: 048
     Dates: start: 20100112
  11. PREDNISOLONE [Concomitant]
     Dosage: INCREASED TO 5 MG
     Route: 048
     Dates: start: 20100520
  12. PREDNISOLONE [Concomitant]
     Dosage: INCREASED TO 5 MG
     Route: 048
     Dates: start: 20100520
  13. CALCITRIOL [Concomitant]
     Dosage: .25 A?G, QD
     Route: 048
     Dates: end: 20100512
  14. METOLATE [Concomitant]
     Route: 048
     Dates: start: 20080325, end: 20081007
  15. ROCALTROL [Concomitant]
     Route: 048
     Dates: end: 20100512

REACTIONS (1)
  - HAEMOPTYSIS [None]
